FAERS Safety Report 21623215 (Version 1)
Quarter: 2022Q4

REPORT INFORMATION
  Report Type: Other
  Country: IR (occurrence: None)
  Receive Date: 20221121
  Receipt Date: 20221121
  Transmission Date: 20230113
  Serious: Yes (Death, Life-Threatening, Hospitalization, Other)
  Sender: FDA-Public Use
  Company Number: IR-Merck Healthcare KGaA-9366725

PATIENT
  Age: 20 Year
  Sex: Male

DRUGS (1)
  1. SOMATROPIN [Suspect]
     Active Substance: SOMATROPIN
     Indication: Medical anabolic therapy
     Dosage: 10 MG/1.5 ML
     Route: 058

REACTIONS (25)
  - Toxicity to various agents [Fatal]
  - Cardio-respiratory arrest [Fatal]
  - Overdose [Fatal]
  - Drug abuse [Fatal]
  - Pulmonary embolism [Unknown]
  - Pneumonia aspiration [Unknown]
  - Hypertensive crisis [Unknown]
  - Rhabdomyolysis [Unknown]
  - Hypernatraemia [Unknown]
  - Hyperkalaemia [Unknown]
  - Pleural effusion [Unknown]
  - Circulatory collapse [Unknown]
  - Cardiomyopathy [Unknown]
  - Acromegaly [Unknown]
  - Fibrin D dimer increased [Unknown]
  - Troponin increased [Unknown]
  - Upper airway obstruction [Unknown]
  - Oxygen saturation decreased [Unknown]
  - Hallucination [Unknown]
  - Agitation [Unknown]
  - Altered state of consciousness [Unknown]
  - Electrocardiogram abnormal [Unknown]
  - Klebsiella test positive [Unknown]
  - Staphylococcus test positive [Unknown]
  - Intentional product use issue [Unknown]
